FAERS Safety Report 13246986 (Version 1)
Quarter: 2017Q1

REPORT INFORMATION
  Report Type: Spontaneous
  Country: US (occurrence: US)
  Receive Date: 20170217
  Receipt Date: 20170217
  Transmission Date: 20170428
  Serious: No
  Sender: FDA-Public Use
  Company Number: US-PERRIGO-16US016181

PATIENT
  Sex: Female
  Weight: 67.12 kg

DRUGS (2)
  1. CETIRIZINE HYDROCHLORIDE. [Suspect]
     Active Substance: CETIRIZINE HYDROCHLORIDE
     Indication: SEASONAL ALLERGY
     Dosage: 10 MG, QD IN THE MORNING
     Route: 048
     Dates: start: 2015, end: 2016
  2. CETIRIZINE HYDROCHLORIDE. [Suspect]
     Active Substance: CETIRIZINE HYDROCHLORIDE
     Dosage: 10 MG, QD IN THE EVENING
     Route: 048
     Dates: start: 2016

REACTIONS (2)
  - Drug administered to patient of inappropriate age [Unknown]
  - Somnolence [Unknown]

NARRATIVE: CASE EVENT DATE: 2015
